FAERS Safety Report 9740606 (Version 1)
Quarter: 2013Q4

REPORT INFORMATION
  Report Type: Spontaneous
  Country: US (occurrence: US)
  Receive Date: 20131209
  Receipt Date: 20131209
  Transmission Date: 20140711
  Serious: No
  Sender: FDA-Public Use
  Company Number: US-BIOGENIDEC-2013BI096441

PATIENT
  Age: 50 Year
  Sex: Female

DRUGS (10)
  1. TECFIDERA [Suspect]
     Indication: MULTIPLE SCLEROSIS
     Route: 048
     Dates: start: 201307
  2. EFFEXOR XR [Concomitant]
  3. PREMPRO [Concomitant]
  4. NEURONTIN [Concomitant]
  5. PRILOSEC DR [Concomitant]
  6. CRESTOR [Concomitant]
  7. DAILY MULTIVITAMIN-IRON [Concomitant]
  8. CVS VITAMIN B12 [Concomitant]
  9. CVS VITAMIN D3 [Concomitant]
  10. VITAMIN C [Concomitant]

REACTIONS (1)
  - Multiple sclerosis relapse [Not Recovered/Not Resolved]
